FAERS Safety Report 5069506-9 (Version None)
Quarter: 2006Q3

REPORT INFORMATION
  Report Type: 
  Country: None (occurrence: None)
  Receive Date: 20060803
  Receipt Date: 20060726
  Transmission Date: 20061208
  Serious: Yes (Hospitalization)
  Sender: FDA-Public Use
  Company Number: SE-AVENTIS-200617891GDDC

PATIENT
  Age: 76 Year
  Sex: Male

DRUGS (7)
  1. DAONIL [Suspect]
     Indication: DIABETES MELLITUS
     Route: 048
  2. RENITEC [Suspect]
     Indication: CARDIOVASCULAR DISORDER
     Route: 048
  3. METOPROLOL SUCCINATE [Concomitant]
  4. SIMVASTATIN [Concomitant]
  5. LASIX [Concomitant]
  6. ALLOPURINOL ^NORDIC^ [Concomitant]
  7. TROMBYL [Concomitant]

REACTIONS (3)
  - BLOOD CREATININE INCREASED [None]
  - HYPERKALAEMIA [None]
  - HYPOGLYCAEMIA [None]
